FAERS Safety Report 5305623-3 (Version None)
Quarter: 2007Q2

REPORT INFORMATION
  Report Type: 
  Country: None (occurrence: None)
  Receive Date: 20070419
  Receipt Date: 20070419
  Transmission Date: 20071010
  Serious: No
  Sender: FDA-Public Use
  Company Number: None

PATIENT
  Sex: Male
  Weight: 94 kg

DRUGS (2)
  1. LEUPROLIDE ACETATE [Suspect]
     Dosage: 30 MG
  2. CASODEX [Suspect]
     Dosage: 1500 MG

REACTIONS (3)
  - DIABETES MELLITUS [None]
  - DYSURIA [None]
  - URINARY RETENTION [None]
